FAERS Safety Report 8134356-3 (Version None)
Quarter: 2012Q1

REPORT INFORMATION
  Report Type: 
  Country: None (occurrence: None)
  Receive Date: 20120103
  Receipt Date: 20111110
  Transmission Date: 20120608
  Serious: No
  Sender: FDA-Public Use
  Company Number: AE-2011-003280

PATIENT
  Age: 38 Year
  Sex: Female
  Weight: 86.1834 kg

DRUGS (6)
  1. PEGASYS [Concomitant]
  2. NOVOLIN N [Concomitant]
  3. MULTI-VITAMINS [Concomitant]
  4. ENALAPRIL MALEATE [Concomitant]
  5. INCIVEK [Suspect]
     Dosage: 2250 MG (750 MG, 1 IN 8 HR)
     Dates: start: 20111021
  6. COPEGUS [Concomitant]

REACTIONS (6)
  - SPUTUM ABNORMAL [None]
  - NASOPHARYNGITIS [None]
  - PYREXIA [None]
  - SINUSITIS [None]
  - INFECTION [None]
  - COUGH [None]
